FAERS Safety Report 8807283 (Version 1)
Quarter: 2012Q4

REPORT INFORMATION
  Report Type: 
  Country: DE (occurrence: DE)
  Receive Date: 20120925
  Receipt Date: 20120925
  Transmission Date: 20130627
  Serious: Yes (Hospitalization)
  Sender: FDA-Public Use
  Company Number: DE-B.I. PHARMACEUTICALS,INC./RIDGEFIELD-2012-DE-02241DE

PATIENT
  Age: 62 Year
  Sex: Male
  Weight: 62 kg

DRUGS (10)
  1. SPIRIVA [Suspect]
     Indication: MALIGNANT MELANOMA
     Dosage: 18 mcg
     Dates: start: 200910, end: 20120130
  2. SPIRIVA [Suspect]
     Dosage: 36 mcg
     Dates: start: 20120131, end: 20120304
  3. VEMURAFENIB [Suspect]
     Indication: MALIGNANT MELANOMA
     Dosage: 1920 mg
     Route: 048
     Dates: start: 20120125
  4. VEMURAFENIB [Suspect]
     Dosage: 1440 mg
     Route: 048
     Dates: start: 20120207
  5. FORMOTEROL [Suspect]
     Indication: MALIGNANT MELANOMA
     Dosage: 24 mcg
     Dates: start: 200910, end: 20120130
  6. FORMOTEROL [Suspect]
     Dosage: 48 mcg
     Dates: start: 20120131, end: 20120304
  7. BUDESONIDE [Suspect]
     Indication: MALIGNANT MELANOMA
     Dosage: 150 mg
     Dates: start: 200910, end: 20120130
  8. BUDESONIDE [Suspect]
     Dosage: 450 mg
     Dates: start: 20120131, end: 20120222
  9. THEOPHYLLIN [Suspect]
     Indication: MALIGNANT MELANOMA
     Dosage: 200 mg
     Dates: start: 200910, end: 20120130
  10. THEOPHYLLIN [Suspect]
     Dosage: 500 mg
     Dates: start: 20120131

REACTIONS (1)
  - Dyspnoea [Recovered/Resolved]
